FAERS Safety Report 10098534 (Version 4)
Quarter: 2014Q3

REPORT INFORMATION
  Report Type: Report from Study
  Country: JP (occurrence: JP)
  Receive Date: 20140423
  Receipt Date: 20140711
  Transmission Date: 20150326
  Serious: Yes (Death, Life-Threatening, Hospitalization)
  Sender: FDA-Public Use
  Company Number: JP-SA-THYM-1002700

PATIENT
  Age: 38 Year
  Sex: Male
  Weight: 70 kg

DRUGS (14)
  1. THYMOGLOBULIN [Suspect]
     Active Substance: LAPINE T-LYMPHOCYTE IMMUNE GLOBULIN
     Indication: BONE MARROW CONDITIONING REGIMEN
     Dosage: 70 MG, QD
     Route: 042
     Dates: start: 20100217, end: 20100218
  2. LOPEMIN [Concomitant]
     Active Substance: LOPERAMIDE HYDROCHLORIDE
     Indication: DIARRHOEA
     Dosage: UNK
     Dates: start: 20100313, end: 20100313
  3. PROGRAF [Concomitant]
     Active Substance: TACROLIMUS\TACROLIMUS ANHYDROUS
     Indication: PROPHYLAXIS
     Dosage: UNK
     Dates: start: 20100218, end: 20100220
  4. BAKTAR [Concomitant]
     Active Substance: SULFAMETHOXAZOLE\TRIMETHOPRIM
     Indication: PROPHYLAXIS
     Dosage: UNK
     Dates: start: 20100313, end: 20100318
  5. DIFLUCAN [Concomitant]
     Active Substance: FLUCONAZOLE
     Indication: PROPHYLAXIS
     Dosage: UNK
     Dates: start: 20100309, end: 20100318
  6. ZOVIRAX [Concomitant]
     Active Substance: ACYCLOVIR
     Indication: PROPHYLAXIS
     Dosage: UNK
     Dates: start: 20100309, end: 20100318
  7. POLARAMINE [Concomitant]
     Active Substance: DEXCHLORPHENIRAMINE MALEATE
     Indication: PROPHYLAXIS
     Dosage: UNK
     Dates: start: 20100216, end: 20100218
  8. CYLOCIDE [Concomitant]
     Active Substance: CYTARABINE
     Indication: BONE MARROW CONDITIONING REGIMEN
     Dosage: UNK
     Dates: start: 20100211, end: 20100214
  9. URSO [Concomitant]
     Active Substance: URSODIOL
     Indication: PROPHYLAXIS
     Dosage: UNK
     Dates: start: 20100309, end: 20100318
  10. GENINAX [Concomitant]
     Active Substance: GARENOXACIN MESYLATE
     Indication: PROPHYLAXIS
     Dosage: UNK
     Dates: start: 20100309, end: 20100318
  11. FLUDARA [Suspect]
     Active Substance: FLUDARABINE PHOSPHATE
     Indication: BONE MARROW CONDITIONING REGIMEN
     Dosage: UNK
     Route: 042
     Dates: start: 20100212, end: 20100214
  12. GASTER [Concomitant]
     Active Substance: FAMOTIDINE
     Indication: PROPHYLAXIS
     Dosage: UNK
     Dates: start: 20100309, end: 20100318
  13. MAGMITT [Concomitant]
     Active Substance: MAGNESIUM OXIDE
     Indication: PROPHYLAXIS
     Dosage: UNK
     Dates: start: 20100309, end: 20100318
  14. POLARAMINE [Concomitant]
     Active Substance: DEXCHLORPHENIRAMINE MALEATE
     Indication: PREMEDICATION
     Dosage: UNK
     Dates: start: 20100216, end: 20100218

REACTIONS (5)
  - Toxic encephalopathy [Unknown]
  - Diarrhoea [Recovered/Resolved]
  - Chills [Recovered/Resolved]
  - Encephalopathy [Fatal]
  - Hyponatraemic encephalopathy [Recovered/Resolved]

NARRATIVE: CASE EVENT DATE: 20100217
